FAERS Safety Report 7039009-0 (Version None)
Quarter: 2010Q4

REPORT INFORMATION
  Report Type: 
  Country: None (occurrence: None)
  Receive Date: 20101012
  Receipt Date: 20101003
  Transmission Date: 20110411
  Serious: Yes (Other)
  Sender: FDA-Public Use
  Company Number: US-TEVA-250633USA

PATIENT
  Sex: Female
  Weight: 71.732 kg

DRUGS (6)
  1. BECLOMETHASONE DIPROPIONATE [Suspect]
     Indication: MULTIPLE ALLERGIES
     Route: 055
     Dates: start: 20100510, end: 20100902
  2. XYZOL [Concomitant]
  3. ORAL CONTRACEPTIVE NOS [Concomitant]
     Indication: CONTRACEPTION
     Dates: end: 20100902
  4. OMEPRAZOLE [Concomitant]
  5. ACETYLSALICYLIC ACID SRT [Concomitant]
  6. NAPROXEN SODIUM [Concomitant]

REACTIONS (9)
  - ARTHRALGIA [None]
  - FLUID RETENTION [None]
  - HEPATIC CIRRHOSIS [None]
  - HEPATITIS [None]
  - INCORRECT ROUTE OF DRUG ADMINISTRATION [None]
  - MYALGIA [None]
  - OEDEMA [None]
  - THROMBOSIS [None]
  - WEIGHT INCREASED [None]
